FAERS Safety Report 23582620 (Version 4)
Quarter: 2024Q3

REPORT INFORMATION
  Report Type: Spontaneous
  Country: US (occurrence: US)
  Receive Date: 20240229
  Receipt Date: 20240927
  Transmission Date: 20241016
  Serious: No
  Sender: ELI LILLY AND CO
  Company Number: US-ELI_LILLY_AND_COMPANY-US202402016986

PATIENT
  Age: 57 Year
  Sex: Female

DRUGS (5)
  1. ADCIRCA [Suspect]
     Active Substance: TADALAFIL
     Indication: Pulmonary arterial hypertension
     Dosage: 40 MG, DAILY
     Route: 048
     Dates: start: 202306
  2. UPTRAVI [Concomitant]
     Active Substance: SELEXIPAG
     Indication: Product used for unknown indication
     Dosage: 400 UG, BID (400 MCG IN THE MORNING AND 600 MCG IN THE EVENING)
     Route: 065
  3. UPTRAVI [Concomitant]
     Active Substance: SELEXIPAG
     Dosage: 200 UG, EACH EVENING (400 MCG IN THE MORNING AND 600 MCG IN THE EVENING)
     Route: 065
  4. UPTRAVI [Concomitant]
     Active Substance: SELEXIPAG
     Dosage: 600 UG, BID (1-400 MCG + 1-200 MCG)
     Route: 065
  5. UPTRAVI [Concomitant]
     Active Substance: SELEXIPAG
     Dosage: 400 UG, BID (PERMANENT MAINTENANCE DOSE)
     Route: 065

REACTIONS (6)
  - Abdominal distension [Recovered/Resolved]
  - Decreased appetite [Not Recovered/Not Resolved]
  - Contusion [Unknown]
  - Headache [Recovered/Resolved]
  - Dyspnoea [Not Recovered/Not Resolved]
  - Myalgia [Unknown]
